FAERS Safety Report 5581037-6 (Version None)
Quarter: 2007Q4

REPORT INFORMATION
  Report Type: 
  Country: None (occurrence: None)
  Receive Date: 20071227
  Receipt Date: 20071218
  Transmission Date: 20080405
  Serious: Yes (Other)
  Sender: FDA-Public Use
  Company Number: 1-15615403/MED-07282

PATIENT
  Age: 58 Year
  Sex: Female

DRUGS (2)
  1. PROPAFENONE HCL [Suspect]
     Indication: ARRHYTHMIA
     Dosage: 900 MG/DAY, ORAL
     Route: 048
  2. LITHIUM [Suspect]
     Indication: BIPOLAR DISORDER
     Dosage: 900 MG/DAY, ORAL
     Route: 048

REACTIONS (1)
  - BRUGADA SYNDROME [None]
